FAERS Safety Report 7537444 (Version 16)
Quarter: 2016Q1

REPORT INFORMATION
  Report Type: Report from Study
  Country: JP (occurrence: JP)
  Receive Date: 20100811
  Receipt Date: 20160218
  Transmission Date: 20160526
  Serious: Yes (Life-Threatening, Hospitalization, Other)
  Sender: FDA-Public Use
  Company Number: PHHY2010JP50217

PATIENT
  Age: 77 Year
  Sex: Female
  Weight: 36 kg

DRUGS (55)
  1. PREDNISOLONE. [Suspect]
     Active Substance: PREDNISOLONE
     Dosage: 7 MG, QD
     Route: 048
     Dates: start: 20090930, end: 20100202
  2. PREDNISOLONE. [Suspect]
     Active Substance: PREDNISOLONE
     Dosage: 4 MG
     Route: 048
     Dates: end: 20110927
  3. PREDNISOLONE. [Suspect]
     Active Substance: PREDNISOLONE
     Dosage: 4 MG, UNK
     Route: 048
     Dates: start: 20130417, end: 20140930
  4. DESFERAL [Concomitant]
     Active Substance: DEFEROXAMINE MESYLATE
     Indication: IRON OVERLOAD
     Dosage: 1000 MG, UNK
     Route: 030
     Dates: start: 20071227, end: 20090902
  5. GASTER [Concomitant]
     Active Substance: FAMOTIDINE
     Indication: GASTRITIS PROPHYLAXIS
     Dosage: 40 MG, UNK
     Route: 048
  6. NOVOLIN 30R [Concomitant]
     Active Substance: INSULIN HUMAN
     Dosage: 10 IU, UNK
     Route: 065
     Dates: start: 20100422, end: 20100603
  7. AMARYL [Concomitant]
     Active Substance: GLIMEPIRIDE
     Dosage: 0.5 MG, UNK
     Route: 048
     Dates: start: 20110420, end: 20120124
  8. GLUFAST [Concomitant]
     Active Substance: MITIGLINIDE
     Dosage: 20 MG, UNK
     Route: 048
     Dates: end: 20110222
  9. PLATELETS [Concomitant]
     Active Substance: HUMAN PLATELET, ALLOGENIC
     Indication: PRODUCT USED FOR UNKNOWN INDICATION
     Dosage: 15 U, TID
     Route: 065
     Dates: start: 20110519, end: 20110605
  10. GASTER [Concomitant]
     Active Substance: FAMOTIDINE
     Dosage: 20 MG, UNK
     Route: 048
     Dates: end: 20140930
  11. RED BLOOD CELLS, CONCENTRATED [Concomitant]
     Active Substance: HUMAN RED BLOOD CELL
     Dosage: 4 UNK, UNK
     Dates: start: 20120919, end: 20121002
  12. MUCODYNE [Concomitant]
     Active Substance: CARBOCYSTEINE
     Indication: PROPHYLAXIS
     Dosage: 1500 MG, UNK
     Route: 048
     Dates: start: 20100819
  13. XALATAN [Concomitant]
     Active Substance: LATANOPROST
     Indication: GLAUCOMA
     Dosage: UNK
     Route: 047
     Dates: end: 20140120
  14. ZOLPIDEM TARTRATE. [Concomitant]
     Active Substance: ZOLPIDEM TARTRATE
     Indication: PROPHYLAXIS
     Dosage: 5 MG, PRN
     Route: 048
     Dates: start: 20140630, end: 20140930
  15. PREDNISOLONE. [Suspect]
     Active Substance: PREDNISOLONE
     Dosage: 7 MG, UNK
     Route: 048
     Dates: start: 20120125, end: 20130313
  16. DESFERAL [Concomitant]
     Active Substance: DEFEROXAMINE MESYLATE
     Dosage: 1000 MG, UNK
     Route: 030
     Dates: start: 20110428, end: 20110502
  17. RED BLOOD CELLS, CONCENTRATED [Concomitant]
     Active Substance: HUMAN RED BLOOD CELL
     Dosage: 4 U, UNK
     Dates: start: 20130522, end: 20140910
  18. AMARYL [Concomitant]
     Active Substance: GLIMEPIRIDE
     Indication: PRODUCT USED FOR UNKNOWN INDICATION
     Dosage: 0.5 MG, UNK
     Route: 048
     Dates: start: 20100604, end: 20100820
  19. AMARYL [Concomitant]
     Active Substance: GLIMEPIRIDE
     Dosage: 1 MG, UNK
     Route: 048
     Dates: start: 20120125, end: 20120214
  20. AMARYL [Concomitant]
     Active Substance: GLIMEPIRIDE
     Dosage: 1 MG, UNK
     Route: 048
     Dates: start: 20120906, end: 20140623
  21. AZOPT [Concomitant]
     Active Substance: BRINZOLAMIDE
     Dosage: UNK
     Route: 047
     Dates: start: 20140121, end: 20140930
  22. PREDNISOLONE. [Suspect]
     Active Substance: PREDNISOLONE
     Dosage: 6 MG, QD
     Route: 048
     Dates: start: 20100203, end: 20100421
  23. REVLIMID [Suspect]
     Active Substance: LENALIDOMIDE
     Indication: MYELODYSPLASTIC SYNDROME
     Dosage: 5 MG, QD
     Route: 048
     Dates: start: 20110412, end: 20110502
  24. REVLIMID [Suspect]
     Active Substance: LENALIDOMIDE
     Dosage: 5 MG, QD
     Route: 048
     Dates: start: 20110519, end: 20110601
  25. NOVOLIN 30R [Concomitant]
     Active Substance: INSULIN HUMAN
     Dosage: 12 IU, UNK
     Route: 065
     Dates: start: 20091028, end: 20091124
  26. RED BLOOD CELLS, CONCENTRATED [Concomitant]
     Active Substance: HUMAN RED BLOOD CELL
     Indication: PRODUCT USED FOR UNKNOWN INDICATION
     Dosage: 4 U, EVERY THREE WEEKS
     Route: 065
     Dates: start: 20100427, end: 20100528
  27. AMARYL [Concomitant]
     Active Substance: GLIMEPIRIDE
     Dosage: 1.5 MG, UNK
     Route: 048
     Dates: start: 20120215, end: 20120410
  28. VOGLIBOSE [Concomitant]
     Active Substance: VOGLIBOSE
     Indication: TYPE 2 DIABETES MELLITUS
     Dosage: 0.6 MG, UNK
     Route: 048
     Dates: start: 20110406
  29. ICL670A [Suspect]
     Active Substance: DEFERASIROX
     Dosage: 625 MG, QD
     Route: 048
     Dates: start: 20110507, end: 20110518
  30. PREDNISOLONE. [Suspect]
     Active Substance: PREDNISOLONE
     Indication: PRODUCT USED FOR UNKNOWN INDICATION
     Dosage: 8 MG, QD
     Route: 048
     Dates: start: 200704, end: 20090929
  31. PREDNISOLONE. [Suspect]
     Active Substance: PREDNISOLONE
     Dosage: 8 MG, QD
     Route: 048
     Dates: start: 20110928, end: 20120124
  32. PREDNISOLONE. [Suspect]
     Active Substance: PREDNISOLONE
     Dosage: 6 MG
     Route: 048
     Dates: start: 20120314, end: 20120904
  33. NOVOLIN 30R [Concomitant]
     Active Substance: INSULIN HUMAN
     Dosage: 14 IU, UNK
     Route: 065
     Dates: start: 20091125, end: 20100421
  34. RED BLOOD CELLS, CONCENTRATED [Concomitant]
     Active Substance: HUMAN RED BLOOD CELL
     Dosage: 4 U, EVERY TWO WEEKS
     Route: 065
     Dates: start: 20100614, end: 20100922
  35. KLARICID [Concomitant]
     Active Substance: CLARITHROMYCIN
     Indication: PROPHYLAXIS
     Dosage: 200 MG, UNK
     Route: 048
     Dates: start: 20100823
  36. AZOPT [Concomitant]
     Active Substance: BRINZOLAMIDE
     Indication: GLAUCOMA
     Dosage: UNK
     Route: 047
     Dates: end: 20130918
  37. PLATELETS [Concomitant]
     Active Substance: HUMAN PLATELET, ALLOGENIC
     Dosage: 15 U, TID
     Route: 065
     Dates: start: 20100420, end: 20110511
  38. PREDNISOLONE. [Suspect]
     Active Substance: PREDNISOLONE
     Dosage: 5 MG, QD
     Route: 048
     Dates: start: 20100422
  39. PREDNISOLONE. [Suspect]
     Active Substance: PREDNISOLONE
     Dosage: 5 MG, UNK
     Route: 048
     Dates: start: 20120905, end: 20130416
  40. DESFERAL [Concomitant]
     Active Substance: DEFEROXAMINE MESYLATE
     Dosage: 1000 MG, UNK
     Route: 030
     Dates: start: 20110407, end: 20110415
  41. NOVOLIN 30R [Concomitant]
     Active Substance: INSULIN HUMAN
     Indication: PRODUCT USED FOR UNKNOWN INDICATION
     Dosage: 10 IU, UNK
     Route: 065
     Dates: start: 20090826, end: 20091027
  42. RED BLOOD CELLS, CONCENTRATED [Concomitant]
     Active Substance: HUMAN RED BLOOD CELL
     Dosage: 3 U, UNK
     Dates: start: 20121003, end: 20130115
  43. AMARYL [Concomitant]
     Active Substance: GLIMEPIRIDE
     Dosage: 2 MG, UNK
     Route: 048
     Dates: start: 20120411, end: 20120905
  44. GLUFAST [Concomitant]
     Active Substance: MITIGLINIDE
     Indication: PRODUCT USED FOR UNKNOWN INDICATION
     Dosage: 40 MG, UNK
     Route: 048
     Dates: start: 20100826
  45. COSOPT [Concomitant]
     Active Substance: DORZOLAMIDE HYDROCHLORIDE\TIMOLOL MALEATE
     Indication: GLAUCOMA
     Dosage: UNK
     Route: 047
     Dates: start: 20140121, end: 20140930
  46. ICL670A [Suspect]
     Active Substance: DEFERASIROX
     Dosage: 500 MG, UNK
     Route: 048
     Dates: start: 20130418
  47. RED BLOOD CELLS, CONCENTRATED [Concomitant]
     Active Substance: HUMAN RED BLOOD CELL
     Dosage: 2 UNK, UNK
     Dates: start: 20130116, end: 20130521
  48. EQUA [Concomitant]
     Active Substance: VILDAGLIPTIN
     Indication: TYPE 2 DIABETES MELLITUS
     Dosage: 100 MG, UNK
     Route: 048
     Dates: start: 20120906, end: 20140930
  49. VOGLIBOSE [Concomitant]
     Active Substance: VOGLIBOSE
     Dosage: 0.6 MG, UNK
     Route: 048
     Dates: start: 20120906, end: 20140623
  50. ALPHAGAN P [Concomitant]
     Active Substance: BRIMONIDINE TARTRATE
     Indication: GLAUCOMA
     Dosage: UNK
     Route: 047
     Dates: start: 20140121, end: 20140930
  51. TRAVATAN Z [Concomitant]
     Active Substance: TRAVOPROST
     Indication: GLAUCOMA
     Dosage: UNK
     Route: 047
     Dates: start: 20140121, end: 20140930
  52. ICL670A [Suspect]
     Active Substance: DEFERASIROX
     Indication: MYELODYSPLASTIC SYNDROME
     Dosage: 750 MG, QD
     Route: 048
     Dates: start: 20090916, end: 20110403
  53. ICL670A [Suspect]
     Active Substance: DEFERASIROX
     Dosage: 625 MG, QOD
     Route: 048
     Dates: start: 20110519, end: 20130417
  54. BONALON [Concomitant]
     Active Substance: ALENDRONATE SODIUM
     Indication: PRODUCT USED FOR UNKNOWN INDICATION
     Dosage: 5 MG, UNK
     Route: 048
     Dates: start: 20100412
  55. TIMOPTOL-XE [Concomitant]
     Active Substance: TIMOLOL
     Indication: GLAUCOMA
     Dosage: UNK
     Route: 047
     Dates: end: 20140120

REACTIONS (18)
  - Pneumonia [Recovered/Resolved]
  - Pyrexia [Unknown]
  - Urinary tract infection [Recovered/Resolved]
  - Herpes zoster [Recovered/Resolved]
  - General physical health deterioration [Unknown]
  - Renal impairment [Recovered/Resolved]
  - Pubis fracture [Recovered/Resolved]
  - Cough [Unknown]
  - Neutropenia [Recovered/Resolved]
  - Sepsis [Recovered/Resolved]
  - Pneumonia [Recovered/Resolved]
  - Pneumonia [Recovered/Resolved]
  - Blood creatinine increased [Recovered/Resolved]
  - Pneumonia [Recovered/Resolved]
  - Thrombocytopenia [Recovered/Resolved]
  - Blood creatinine increased [Not Recovered/Not Resolved]
  - Blood alkaline phosphatase increased [Not Recovered/Not Resolved]
  - Renal impairment [Recovered/Resolved]

NARRATIVE: CASE EVENT DATE: 20110417
